FAERS Safety Report 11803691 (Version 2)
Quarter: 2015Q4

REPORT INFORMATION
  Report Type: Spontaneous
  Country: CA (occurrence: CA)
  Receive Date: 20151204
  Receipt Date: 20151209
  Transmission Date: 20160305
  Serious: Yes (Other)
  Sender: FDA-Public Use
  Company Number: CA-CONCORDIA PHARMACEUTICALS INC.-CO-PL-CA-2015-397

PATIENT
  Sex: Female

DRUGS (8)
  1. GOLD [Concomitant]
     Active Substance: GOLD
  2. RITUXAN [Concomitant]
     Active Substance: RITUXIMAB
  3. CIMZIA [Concomitant]
     Active Substance: CERTOLIZUMAB PEGOL
  4. HUMIRA [Concomitant]
     Active Substance: ADALIMUMAB
  5. MOTRIN [Concomitant]
     Active Substance: IBUPROFEN
  6. ENBREL [Concomitant]
     Active Substance: ETANERCEPT
  7. PLAQUENIL [Suspect]
     Active Substance: HYDROXYCHLOROQUINE SULFATE
     Indication: RHEUMATOID ARTHRITIS
     Route: 065
  8. METHOTREXATE [Concomitant]
     Active Substance: METHOTREXATE

REACTIONS (2)
  - Drug ineffective [Unknown]
  - Retinal deposits [Unknown]
